FAERS Safety Report 19018533 (Version 1)
Quarter: 2021Q1

REPORT INFORMATION
  Report Type: Spontaneous
  Country: CN (occurrence: CN)
  Receive Date: 20210316
  Receipt Date: 20210316
  Transmission Date: 20210420
  Serious: Yes (Other)
  Sender: FDA-Public Use
  Company Number: CN-SLATE RUN PHARMACEUTICALS-21CN000423

PATIENT

DRUGS (5)
  1. VORICONAZOLE. [Suspect]
     Active Substance: VORICONAZOLE
     Dosage: 200 MILLIGRAM, Q 12 HR
     Route: 048
     Dates: start: 20190322, end: 20190414
  2. VORICONAZOLE. [Suspect]
     Active Substance: VORICONAZOLE
     Dosage: 200 MILLIGRAM, Q 12 HR
     Route: 048
     Dates: start: 20190122, end: 20190220
  3. VORICONAZOLE. [Suspect]
     Active Substance: VORICONAZOLE
     Indication: BRONCHOPULMONARY ASPERGILLOSIS
     Dosage: 100 MILLIGRAM, Q 12 HR
     Route: 048
     Dates: start: 20190415, end: 20190625
  4. LEFLUNOMIDE. [Concomitant]
     Active Substance: LEFLUNOMIDE
     Indication: RHEUMATOID ARTHRITIS
     Dosage: 10 MILLIGRAM, QD
     Route: 065
  5. METOPROLOL. [Concomitant]
     Active Substance: METOPROLOL
     Indication: SINUS TACHYCARDIA
     Dosage: 47.5 MILLIGRAM, QD
     Route: 065

REACTIONS (2)
  - Alanine aminotransferase increased [Recovered/Resolved]
  - Hyperlipidaemia [Recovered/Resolved]

NARRATIVE: CASE EVENT DATE: 20190204
